FAERS Safety Report 5043783-2 (Version None)
Quarter: 2006Q2

REPORT INFORMATION
  Report Type: 
  Country: None (occurrence: None)
  Receive Date: 20060629
  Receipt Date: 20060619
  Transmission Date: 20061013
  Serious: Yes (Hospitalization)
  Sender: FDA-Public Use
  Company Number: FR-2006-016834

PATIENT
  Age: 79 Year
  Sex: Female

DRUGS (6)
  1. SOTALOL HYDROCHLORIDE [Suspect]
     Dosage: 60 MG, UNK, ORAL
     Route: 048
  2. IRBESARTAN [Suspect]
     Dosage: 300 MG, 1X/DAY, UNK
     Dates: end: 20060409
  3. LASIX [Suspect]
     Dosage: 40 MG, 1X/DAY, UNK
     Dates: end: 20060409
  4. ALDACTAZIDE [Suspect]
     Dosage: 1 TAB(S), 1X/DAY, ORAL
     Route: 048
     Dates: end: 20060409
  5. ZESTRIL [Suspect]
     Dosage: 20 MG, 1X/DAY, UNK
     Dates: end: 20060406
  6. FENOFIBRATE [Concomitant]

REACTIONS (4)
  - DIARRHOEA [None]
  - POLLAKIURIA [None]
  - RENAL FAILURE ACUTE [None]
  - WEIGHT DECREASED [None]
